FAERS Safety Report 8722045 (Version 6)
Quarter: 2014Q1

REPORT INFORMATION
  Report Type: Spontaneous
  Country: DE (occurrence: DE)
  Receive Date: 20120814
  Receipt Date: 20140211
  Transmission Date: 20141002
  Serious: Yes (Other)
  Sender: FDA-Public Use
  Company Number: DE-PFIZER INC-2012193336

PATIENT
  Age: 54 Year
  Sex: Female
  Weight: 82 kg

DRUGS (4)
  1. AROMASIN [Suspect]
     Indication: BREAST CANCER
     Dosage: UNK
     Dates: start: 2008, end: 200812
  2. EXEMESTANE [Suspect]
     Indication: BREAST CANCER METASTATIC
     Dosage: UNK
     Dates: start: 200812
  3. CALZIUM PLUS D3 [Concomitant]
  4. KELTICAN /OLD FORM/ [Concomitant]

REACTIONS (6)
  - Visual acuity reduced [Unknown]
  - Retinal tear [Unknown]
  - Hot flush [Unknown]
  - Dyspepsia [Unknown]
  - Mucosal dryness [Unknown]
  - Osteoporosis [Unknown]
